FAERS Safety Report 6068464-8 (Version None)
Quarter: 2009Q1

REPORT INFORMATION
  Report Type: 
  Country: None (occurrence: None)
  Receive Date: 20090206
  Receipt Date: 20090109
  Transmission Date: 20090719
  Serious: No
  Sender: FDA-Public Use
  Company Number: US-BAYER-200910443NA

PATIENT
  Age: 40 Year
  Sex: Female

DRUGS (1)
  1. CAMPATH [Suspect]
     Indication: MULTIPLE SCLEROSIS
     Dates: start: 20080505, end: 20080509

REACTIONS (1)
  - ALOPECIA [None]
